FAERS Safety Report 5302521-6 (Version None)
Quarter: 2007Q1

REPORT INFORMATION
  Report Type: 
  Country: None (occurrence: None)
  Receive Date: 20070201
  Receipt Date: 20061129
  Transmission Date: 20070707
  Serious: No
  Sender: FDA-Public Use
  Company Number: 2006PV026032

PATIENT
  Age: 57 Year
  Sex: Male

DRUGS (1)
  1. BYETTA [Suspect]
     Indication: APPETITE DISORDER
     Dosage: 5 MCG; BID; SC
     Route: 058
     Dates: start: 20061128

REACTIONS (2)
  - INJECTION SITE PAIN [None]
  - MYALGIA [None]
